FAERS Safety Report 13428953 (Version 1)
Quarter: 2017Q2

REPORT INFORMATION
  Report Type: Spontaneous
  Country: JP (occurrence: JP)
  Receive Date: 20170411
  Receipt Date: 20170411
  Transmission Date: 20170830
  Serious: Yes (Death, Hospitalization, Other)
  Sender: FDA-Public Use
  Company Number: JP-PURDUE-GBR-2017-0044588

PATIENT
  Age: 70 Year
  Sex: Male

DRUGS (5)
  1. UROMITEXAN [Concomitant]
     Active Substance: MESNA
     Indication: SQUAMOUS CELL CARCINOMA
     Dosage: 600 MG, TID
     Route: 041
     Dates: start: 20150728, end: 20151112
  2. IFOMIDE [Suspect]
     Active Substance: IFOSFAMIDE
     Indication: SQUAMOUS CELL CARCINOMA
     Dosage: 1800 MG, DAILY
     Route: 041
     Dates: start: 20150728, end: 20151112
  3. PACLITAXEL. [Concomitant]
     Active Substance: PACLITAXEL
     Indication: SQUAMOUS CELL CARCINOMA
     Dosage: 260 MG, DAILY
     Route: 065
     Dates: start: 20150728
  4. OXYCONTIN [Suspect]
     Active Substance: OXYCODONE HYDROCHLORIDE
     Indication: PRODUCT USED FOR UNKNOWN INDICATION
     Route: 065
  5. CISPLATIN. [Concomitant]
     Active Substance: CISPLATIN
     Indication: SQUAMOUS CELL CARCINOMA
     Dosage: 30 MG, DAILY
     Route: 041
     Dates: start: 20150728, end: 20151128

REACTIONS (3)
  - Squamous cell carcinoma [Fatal]
  - Neutropenia [Recovered/Resolved]
  - Ileus paralytic [Recovering/Resolving]

NARRATIVE: CASE EVENT DATE: 20150805
